FAERS Safety Report 16239485 (Version 1)
Quarter: 2019Q2

REPORT INFORMATION
  Report Type: Spontaneous
  Country: HU (occurrence: HU)
  Receive Date: 20190425
  Receipt Date: 20190425
  Transmission Date: 20190711
  Serious: Yes (Other)
  Sender: FDA-Public Use
  Company Number: HU-009507513-1904HUN005500

PATIENT
  Age: 73 Year
  Sex: Male
  Weight: 100 kg

DRUGS (14)
  1. KEYTRUDA [Suspect]
     Active Substance: PEMBROLIZUMAB
     Indication: METASTASES TO BONE MARROW
     Dosage: 200 MILLIGRAM, EVERY THIRD WEEK
     Dates: start: 20190314
  2. ASPIRIN. [Concomitant]
     Active Substance: ASPIRIN
     Dosage: 100 MILLIGRAM, QD
     Route: 048
  3. ALGOFLEX (IBUPROFEN) [Concomitant]
     Dosage: 3 X1 TABLET DAILY
     Route: 048
  4. COVERCARD [Concomitant]
     Active Substance: AMLODIPINE BESYLATE\PERINDOPRIL ARGININE
     Dosage: 1 TABLET IN THE EVENING
     Route: 048
  5. COVEREX AS [Concomitant]
     Active Substance: PERINDOPRIL ARGININE
     Dosage: 5 MILLIGRAM, 1 TABLET DAILY
     Route: 048
  6. CAVINTON [Concomitant]
     Active Substance: VINPOCETINE
     Dosage: 1 TABLET, DAILY
     Route: 048
  7. MILURIT [Concomitant]
     Active Substance: ALLOPURINOL
     Dosage: 100 MILLIGRAM, QD
     Route: 048
  8. NOACID (PANTOPRAZOLE SODIUM) [Concomitant]
     Dosage: 20 MILLIGRAM
     Route: 048
  9. KEYTRUDA [Suspect]
     Active Substance: PEMBROLIZUMAB
     Indication: LUNG ADENOCARCINOMA
     Dosage: 200 MILLIGRAM, EVERY THIRD WEEK
     Dates: start: 20190122
  10. KEYTRUDA [Suspect]
     Active Substance: PEMBROLIZUMAB
     Indication: ADENOCARCINOMA
  11. NEBIBETA [Concomitant]
     Active Substance: NEBIVOLOL HYDROCHLORIDE
     Dosage: 2.5 MILLIGRAM DAILY
     Route: 048
  12. FRONTIN [Concomitant]
     Active Substance: ALPRAZOLAM
     Dosage: 0.25 MILLIGRAM, IF NEEDED
     Route: 048
  13. KEYTRUDA [Suspect]
     Active Substance: PEMBROLIZUMAB
     Indication: METASTASES TO BONE
     Dosage: 200 MILLIGRAM, EVERY THIRD WEEK
     Dates: start: 20190408
  14. TRAMADOL HYDROCHLORIDE. [Concomitant]
     Active Substance: TRAMADOL HYDROCHLORIDE
     Dosage: 50 MILLIGRAM IN THE EVENING
     Route: 048

REACTIONS (7)
  - Hepatic enzyme increased [Recovering/Resolving]
  - Product use in unapproved indication [Unknown]
  - Blood creatine phosphokinase increased [Recovering/Resolving]
  - Inappropriate schedule of product administration [Unknown]
  - Myalgia [Recovering/Resolving]
  - Immune-mediated hepatitis [Recovering/Resolving]
  - Myositis [Recovering/Resolving]

NARRATIVE: CASE EVENT DATE: 2019
